FAERS Safety Report 19073276 (Version 1)
Quarter: 2021Q1

REPORT INFORMATION
  Report Type: Spontaneous
  Country: CA (occurrence: CA)
  Receive Date: 20210330
  Receipt Date: 20210330
  Transmission Date: 20210420
  Serious: Yes (Hospitalization, Other)
  Sender: FDA-Public Use
  Company Number: CA-PFIZER INC-2021319126

PATIENT
  Age: 62 Year
  Sex: Female

DRUGS (14)
  1. MEKINIST [Interacting]
     Active Substance: TRAMETINIB DIMETHYL SULFOXIDE
     Dosage: 2 MILLIGRAM
     Route: 065
  2. TAFINLAR [Interacting]
     Active Substance: DABRAFENIB MESYLATE
     Dosage: 300 MILLIGRAM
     Route: 048
  3. TAFINLAR [Interacting]
     Active Substance: DABRAFENIB MESYLATE
     Dosage: 150 MILLIGRAM
     Route: 048
  4. MEKINIST [Interacting]
     Active Substance: TRAMETINIB DIMETHYL SULFOXIDE
     Indication: METASTATIC MALIGNANT MELANOMA
     Dosage: 2 MILLIGRAM
     Route: 048
  5. TAFINLAR [Interacting]
     Active Substance: DABRAFENIB MESYLATE
     Dosage: 300 MILLIGRAM
     Route: 048
  6. PANTOPRAZOLE [Suspect]
     Active Substance: PANTOPRAZOLE
     Dosage: UNK
     Route: 065
  7. MEKINIST [Interacting]
     Active Substance: TRAMETINIB DIMETHYL SULFOXIDE
     Dosage: 2 MILLIGRAM
     Route: 048
  8. TAFINLAR [Interacting]
     Active Substance: DABRAFENIB MESYLATE
     Indication: METASTATIC MALIGNANT MELANOMA
     Dosage: 75 MILLIGRAM
     Route: 048
  9. ZANTAC [Interacting]
     Active Substance: RANITIDINE HYDROCHLORIDE
     Dosage: UNK
     Route: 065
  10. MEKINIST [Interacting]
     Active Substance: TRAMETINIB DIMETHYL SULFOXIDE
     Dosage: 2 MILLIGRAM
     Route: 048
  11. TAFINLAR [Interacting]
     Active Substance: DABRAFENIB MESYLATE
     Dosage: 150 MILLIGRAM
     Route: 065
  12. TAFINLAR [Interacting]
     Active Substance: DABRAFENIB MESYLATE
     Dosage: 150 MILLIGRAM
     Route: 065
  13. MEKINIST [Interacting]
     Active Substance: TRAMETINIB DIMETHYL SULFOXIDE
     Dosage: 2 MILLIGRAM
     Route: 065
  14. TAFINLAR [Interacting]
     Active Substance: DABRAFENIB MESYLATE
     Dosage: 300 MILLIGRAM
     Route: 048

REACTIONS (21)
  - Arthralgia [Unknown]
  - Dyspepsia [Unknown]
  - Pain [Unknown]
  - Chills [Unknown]
  - Dysgeusia [Unknown]
  - Fatigue [Unknown]
  - Asthenia [Unknown]
  - Cellulitis [Unknown]
  - Drug interaction [Unknown]
  - Feeling abnormal [Unknown]
  - Pyrexia [Unknown]
  - Constipation [Unknown]
  - Dizziness [Unknown]
  - Neck pain [Unknown]
  - Bone pain [Unknown]
  - Nausea [Unknown]
  - Uveitis [Unknown]
  - Vomiting [Unknown]
  - Diarrhoea [Unknown]
  - Headache [Unknown]
  - Taste disorder [Unknown]
